FAERS Safety Report 5748418-9 (Version None)
Quarter: 2008Q2

REPORT INFORMATION
  Report Type: 
  Country: None (occurrence: None)
  Receive Date: 20080523
  Receipt Date: 20080520
  Transmission Date: 20081010
  Serious: Yes (Hospitalization, Other)
  Sender: FDA-Public Use
  Company Number: FR-MERCK-0805FRA00054

PATIENT
  Age: 79 Year
  Sex: Female

DRUGS (7)
  1. NOROXIN [Suspect]
     Indication: URINARY TRACT INFECTION
     Route: 048
     Dates: start: 20080328, end: 20080401
  2. NEBIVOLOL HYDROCHLORIDE [Concomitant]
     Route: 048
  3. DIGOXIN [Concomitant]
     Route: 048
  4. ASPIRIN LYSINE [Concomitant]
     Route: 048
  5. WARFARIN SODIUM [Concomitant]
     Route: 048
  6. OMEPRAZOLE [Concomitant]
     Route: 048
  7. CLOMIPRAMINE HYDROCHLORIDE [Concomitant]
     Route: 048

REACTIONS (2)
  - DYSKINESIA [None]
  - MYOCLONUS [None]
